FAERS Safety Report 16696307 (Version 3)
Quarter: 2019Q4

REPORT INFORMATION
  Report Type: Spontaneous
  Country: FR (occurrence: FR)
  Receive Date: 20190813
  Receipt Date: 20191003
  Transmission Date: 20200122
  Serious: Yes (Life-Threatening)
  Sender: FDA-Public Use
  Company Number: FR-MYLANLABS-2019M1075553

PATIENT
  Age: 85 Year
  Sex: Male
  Weight: 75 kg

DRUGS (11)
  1. INSPRA [Suspect]
     Active Substance: EPLERENONE
     Indication: PRODUCT USED FOR UNKNOWN INDICATION
     Dosage: AMOUNT INGEST SUPPOSED 4 TAB(100MG,1IN1 TOTAL)
     Route: 048
     Dates: start: 20190701, end: 20190701
  2. IMOVANE [Suspect]
     Active Substance: ZOPICLONE
     Indication: PRODUCT USED FOR UNKNOWN INDICATION
     Dosage: 4 TIMES 7.5 MG. (30 MG,1 IN 1 TOTAL)
     Route: 048
     Dates: start: 20190701, end: 20190701
  3. INEXIUM                            /01479302/ [Suspect]
     Active Substance: ESOMEPRAZOLE MAGNESIUM
     Indication: PRODUCT USED FOR UNKNOWN INDICATION
     Dosage: 4 TABLETS OF 20 MG. (80 MG,1 IN 1 TOTAL)
     Route: 048
     Dates: start: 20190701
  4. RAMIPRIL. [Suspect]
     Active Substance: RAMIPRIL
     Indication: PRODUCT USED FOR UNKNOWN INDICATION
     Dosage: 20 MILLIGRAM, TOTAL (IN DAY)
     Route: 048
     Dates: start: 20190701, end: 20190701
  5. MIANSERINE HCL [Suspect]
     Active Substance: MIANSERIN HYDROCHLORIDE
     Indication: PRODUCT USED FOR UNKNOWN INDICATION
     Dosage: AMOUNT INGEST SUPPOSED 4 TAB OF 30 MG
     Route: 048
     Dates: start: 20190701, end: 20190701
  6. BISOPROLOL [Suspect]
     Active Substance: BISOPROLOL
     Indication: PRODUCT USED FOR UNKNOWN INDICATION
     Dosage: AMOUNT QUANTITY SUPPOSEDLY INGESTED 4 TAB OF 5 MG
     Route: 048
     Dates: start: 20190701, end: 20190701
  7. LEVOTHYROX [Suspect]
     Active Substance: LEVOTHYROXINE
     Indication: PRODUCT USED FOR UNKNOWN INDICATION
     Dosage: 4 X 125 MCG. (500 MCG,1 IN 1 D)
     Route: 048
     Dates: start: 20190701
  8. CORDARONE [Suspect]
     Active Substance: AMIODARONE HYDROCHLORIDE
     Indication: PRODUCT USED FOR UNKNOWN INDICATION
     Dosage: 4 TABLETS OF 200 MG. (800 MG)
     Route: 048
     Dates: start: 20190701, end: 20190701
  9. KARDEGIC [Suspect]
     Active Substance: ASPIRIN DL-LYSINE
     Indication: PRODUCT USED FOR UNKNOWN INDICATION
     Dosage: 4 SACHETS OF 75 MG. (300 MG)
     Route: 048
     Dates: start: 20190701, end: 20190701
  10. MELATONINE [Suspect]
     Active Substance: MELATONIN
     Indication: PRODUCT USED FOR UNKNOWN INDICATION
     Dosage: 4 TIMES 12 MG. (48 MG,1 IN 1 TOTAL)
     Route: 048
     Dates: start: 20190701, end: 20190701
  11. TAHOR [Suspect]
     Active Substance: ATORVASTATIN CALCIUM
     Indication: PRODUCT USED FOR UNKNOWN INDICATION
     Dosage: 40 MILLIGRAM, TOTAL
     Route: 048
     Dates: start: 20190701, end: 20190701

REACTIONS (5)
  - Overdose [Unknown]
  - Bradycardia [Recovered/Resolved]
  - Cardiogenic shock [Recovered/Resolved]
  - Poisoning deliberate [Recovered/Resolved]
  - Hypoglycaemia [Recovered/Resolved]

NARRATIVE: CASE EVENT DATE: 20190701
